FAERS Safety Report 4343465-6 (Version None)
Quarter: 2004Q2

REPORT INFORMATION
  Report Type: 
  Country: None (occurrence: None)
  Receive Date: 20040412
  Receipt Date: 20040331
  Transmission Date: 20050107
  Serious: Yes (Death, Hospitalization)
  Sender: FDA-Public Use
  Company Number: BE-JNJFOC-20040303559

PATIENT
  Age: 89 Year
  Sex: Female

DRUGS (5)
  1. DURAGESIC [Suspect]
     Indication: BONE PAIN
     Dosage: SEE IMAGE
     Route: 062
     Dates: start: 20040220, end: 20040221
  2. DURAGESIC [Suspect]
     Indication: BONE PAIN
     Dosage: SEE IMAGE
     Route: 062
     Dates: start: 20030301
  3. MORPHINE [Suspect]
     Indication: PAIN
     Dosage: 40 MG, 1 IN 1 DAY, ORAL
     Route: 048
     Dates: start: 20040218, end: 20040220
  4. OMEPRAZOLE [Concomitant]
  5. ACCURETIC [Concomitant]

REACTIONS (9)
  - ACUTE PULMONARY OEDEMA [None]
  - CARDIAC FAILURE [None]
  - CARDIOMEGALY [None]
  - HEPATIC FAILURE [None]
  - METABOLIC ACIDOSIS [None]
  - MITRAL VALVE CALCIFICATION [None]
  - RENAL FAILURE ACUTE [None]
  - RESPIRATORY DISTRESS [None]
  - SHOCK [None]
